FAERS Safety Report 5895614-6 (Version None)
Quarter: 2008Q3

REPORT INFORMATION
  Report Type: 
  Country: None (occurrence: None)
  Receive Date: 20080924
  Receipt Date: 20070810
  Transmission Date: 20090109
  Serious: Yes (Other)
  Sender: FDA-Public Use
  Company Number: US-ASTRAZENECA-2006UW20158

PATIENT
  Age: 477 Month
  Sex: Male

DRUGS (4)
  1. SEROQUEL [Suspect]
     Route: 048
  2. RISPERDAL [Suspect]
     Indication: SCHIZOPHRENIA
     Dates: start: 20021106, end: 20030521
  3. RISPERDAL [Suspect]
     Indication: DEPRESSION
     Dates: start: 20021106, end: 20030521
  4. RISPERDAL [Suspect]
     Indication: ANXIETY
     Dates: start: 20021106, end: 20030521

REACTIONS (1)
  - TARDIVE DYSKINESIA [None]
